FAERS Safety Report 9969073 (Version 3)
Quarter: 2014Q1

REPORT INFORMATION
  Report Type: Spontaneous
  Country: GB (occurrence: GB)
  Receive Date: 20140306
  Receipt Date: 20140314
  Transmission Date: 20141002
  Serious: Yes (Hospitalization, Disabling)
  Sender: FDA-Public Use
  Company Number: GB-ROCHE-1351127

PATIENT
  Age: 50 Year
  Sex: Female
  Weight: 58 kg

DRUGS (2)
  1. HERCEPTIN [Suspect]
     Indication: BREAST CANCER
     Dosage: 5ML SOLUTION FOR INJECTION
     Route: 058
     Dates: start: 20140212, end: 20140212
  2. HERCEPTIN [Suspect]
     Dosage: LOADING DOSE
     Route: 042

REACTIONS (2)
  - Pain in extremity [Recovered/Resolved]
  - Weight bearing difficulty [Recovered/Resolved]
